FAERS Safety Report 19715454 (Version 3)
Quarter: 2021Q3

REPORT INFORMATION
  Report Type: Not Available
  Country: US (occurrence: None)
  Receive Date: 20210818
  Receipt Date: 20210929
  Transmission Date: 20211014
  Serious: No
  Sender: FDA-Public Use
  Company Number: NA

PATIENT
  Age: 70 Year
  Sex: Male

DRUGS (1)
  1. THERATEARS LUBRICANT [Suspect]
     Active Substance: CARBOXYMETHYLCELLULOSE SODIUM

REACTIONS (2)
  - Eyelid irritation [Not Recovered/Not Resolved]
  - Eyelids pruritus [None]
